FAERS Safety Report 22238537 (Version 1)
Quarter: 2023Q2

REPORT INFORMATION
  Report Type: Spontaneous
  Country: US (occurrence: None)
  Receive Date: 20230421
  Receipt Date: 20230421
  Transmission Date: 20230721
  Serious: No
  Sender: FDA-Public Use
  Company Number: US-Merck Healthcare KGaA-9396499

PATIENT
  Sex: Female

DRUGS (1)
  1. OVIDREL [Suspect]
     Active Substance: CHORIOGONADOTROPIN ALFA
     Indication: Product used for unknown indication
     Dates: start: 202303

REACTIONS (4)
  - Musculoskeletal chest pain [Recovering/Resolving]
  - Pain in extremity [Recovering/Resolving]
  - Incorrect dose administered [Unknown]
  - Treatment noncompliance [Unknown]
